FAERS Safety Report 15996909 (Version 2)
Quarter: 2019Q2

REPORT INFORMATION
  Report Type: Spontaneous
  Country: NL (occurrence: NL)
  Receive Date: 20190222
  Receipt Date: 20190611
  Transmission Date: 20190711
  Serious: Yes (Other)
  Sender: FDA-Public Use
  Company Number: NL-BAUSCH-BL-2018-034007

PATIENT
  Age: 82 Year
  Sex: Male
  Weight: 74 kg

DRUGS (3)
  1. XTANDI [Suspect]
     Active Substance: ENZALUTAMIDE
     Indication: PROSTATE CANCER
     Route: 048
     Dates: start: 20181018
  2. LISINOPRIL. [Concomitant]
     Active Substance: LISINOPRIL
     Indication: CARDIAC FAILURE
     Dosage: UNKNOWN FREQUENCY
     Route: 065
  3. DEXAMETHASONE. [Suspect]
     Active Substance: DEXAMETHASONE
     Indication: PROSTATE CANCER
     Dosage: FORMULATION UNKNOWN, FREQUENCY UNKNOWN
     Route: 065
     Dates: end: 20181020

REACTIONS (6)
  - Fluid retention [Recovering/Resolving]
  - Pruritus generalised [Not Recovered/Not Resolved]
  - Walking aid user [Unknown]
  - Onychomadesis [Unknown]
  - Skin exfoliation [Not Recovered/Not Resolved]
  - Skin haemorrhage [Unknown]

NARRATIVE: CASE EVENT DATE: 20181018
